FAERS Safety Report 24552236 (Version 1)
Quarter: 2024Q4

REPORT INFORMATION
  Report Type: Spontaneous
  Country: TR (occurrence: TR)
  Receive Date: 20241026
  Receipt Date: 20241026
  Transmission Date: 20250115
  Serious: Yes (Other)
  Sender: ROCHE
  Company Number: TR-002147023-NVSC2024TR206953

PATIENT
  Age: 67 Year
  Sex: Male

DRUGS (1)
  1. XOLAIR [Suspect]
     Active Substance: OMALIZUMAB
     Indication: Wound
     Dosage: UNK (1X2)
     Route: 065

REACTIONS (4)
  - Syncope [Unknown]
  - Product supply issue [Unknown]
  - Wound [Unknown]
  - Off label use [Unknown]
